FAERS Safety Report 14918233 (Version 2)
Quarter: 2018Q2

REPORT INFORMATION
  Report Type: Spontaneous
  Country: US (occurrence: US)
  Receive Date: 20180521
  Receipt Date: 20180521
  Transmission Date: 20180711
  Serious: Yes (Other)
  Sender: FDA-Public Use
  Company Number: PHHY2018US002482

PATIENT
  Age: 37 Year
  Sex: Female

DRUGS (10)
  1. BASILIXIMAB [Suspect]
     Active Substance: BASILIXIMAB
     Indication: IMMUNOSUPPRESSANT DRUG THERAPY
  2. BELATACEPT [Suspect]
     Active Substance: BELATACEPT
     Indication: LUNG TRANSPLANT
     Route: 065
  3. BELATACEPT [Suspect]
     Active Substance: BELATACEPT
     Indication: IMMUNOSUPPRESSANT DRUG THERAPY
  4. TACROLIMUS. [Suspect]
     Active Substance: TACROLIMUS
     Indication: IMMUNOSUPPRESSANT DRUG THERAPY
  5. PREDNISONE. [Suspect]
     Active Substance: PREDNISONE
     Indication: IMMUNOSUPPRESSANT DRUG THERAPY
  6. EVEROLIMUS. [Suspect]
     Active Substance: EVEROLIMUS
     Indication: IMMUNOSUPPRESSANT DRUG THERAPY
  7. PREDNISONE. [Suspect]
     Active Substance: PREDNISONE
     Indication: LUNG TRANSPLANT
     Dosage: UNK
     Route: 065
  8. EVEROLIMUS. [Suspect]
     Active Substance: EVEROLIMUS
     Indication: LUNG TRANSPLANT
     Dosage: UNK
     Route: 065
  9. BASILIXIMAB [Suspect]
     Active Substance: BASILIXIMAB
     Indication: LUNG TRANSPLANT
     Dosage: UNK
     Route: 065
  10. TACROLIMUS. [Suspect]
     Active Substance: TACROLIMUS
     Indication: LUNG TRANSPLANT
     Dosage: UNK
     Route: 065

REACTIONS (6)
  - Headache [Unknown]
  - Lung transplant rejection [Recovered/Resolved]
  - Posterior reversible encephalopathy syndrome [Unknown]
  - Mental status changes [Recovering/Resolving]
  - Hydrocephalus [Unknown]
  - Product use in unapproved indication [Unknown]
